FAERS Safety Report 17466630 (Version 2)
Quarter: 2020Q1

REPORT INFORMATION
  Report Type: Spontaneous
  Country: JP (occurrence: JP)
  Receive Date: 20200227
  Receipt Date: 20200304
  Transmission Date: 20200409
  Serious: Yes (Other)
  Sender: FDA-Public Use
  Company Number: NVSJ2020JP002140

PATIENT
  Age: 64 Year
  Sex: Male

DRUGS (2)
  1. PREDNISOLONE. [Suspect]
     Active Substance: PREDNISOLONE
     Indication: PROPHYLAXIS AGAINST TRANSPLANT REJECTION
     Dosage: 7.5 MG
     Route: 065
  2. CYCLOSPORINE. [Suspect]
     Active Substance: CYCLOSPORINE
     Indication: PROPHYLAXIS AGAINST TRANSPLANT REJECTION
     Dosage: 40-60 MG
     Route: 065

REACTIONS (9)
  - Gastroschisis [Unknown]
  - Central obesity [Unknown]
  - Peripheral artery dissection [Unknown]
  - Colon cancer recurrent [Unknown]
  - Peripheral artery aneurysm [Unknown]
  - Colon cancer [Unknown]
  - Inguinal hernia [Unknown]
  - Diverticulitis [Unknown]
  - Cough [Unknown]
